FAERS Safety Report 5584678-5 (Version None)
Quarter: 2008Q1

REPORT INFORMATION
  Report Type: 
  Country: None (occurrence: None)
  Receive Date: 20080108
  Receipt Date: 20071231
  Transmission Date: 20080703
  Serious: Yes (Hospitalization, Other)
  Sender: FDA-Public Use
  Company Number: GB-PFIZER INC-2007063920

PATIENT
  Age: 14 Year
  Sex: Male

DRUGS (4)
  1. DICLOFENAC SODIUM [Suspect]
     Indication: JUVENILE ARTHRITIS
  2. METHOTREXATE [Concomitant]
     Indication: JUVENILE ARTHRITIS
  3. PREDNISOLONE [Concomitant]
     Indication: JUVENILE ARTHRITIS
  4. ACYCLOVIR [Concomitant]

REACTIONS (6)
  - BLOOD CREATININE INCREASED [None]
  - BLOOD UREA INCREASED [None]
  - DEHYDRATION [None]
  - HERPES ZOSTER [None]
  - RENAL FAILURE ACUTE [None]
  - VOMITING [None]
